FAERS Safety Report 7585489-1 (Version None)
Quarter: 2011Q2

REPORT INFORMATION
  Report Type: 
  Country: None (occurrence: None)
  Receive Date: 20110624
  Receipt Date: 20110616
  Transmission Date: 20111010
  Serious: Yes (Other)
  Sender: FDA-Public Use
  Company Number: 2011060175

PATIENT
  Age: 51 Year
  Sex: Male
  Weight: 74.3899 kg

DRUGS (6)
  1. ASTEPRO 0.15% (AZELASTINE HYDROCHLORIDE) [Suspect]
     Indication: NASAL CONGESTION
     Dosage: 411 MCG (411 MCG, 1 IN 1 D), IN
     Route: 055
  2. ASTEPRO 0.15% (AZELASTINE HYDROCHLORIDE) [Suspect]
     Indication: HEADACHE
     Dosage: 411 MCG (411 MCG, 1 IN 1 D), IN
     Route: 055
  3. ASTEPRO 0.15% (AZELASTINE HYDROCHLORIDE) [Suspect]
     Indication: SINUS DISORDER
     Dosage: 411 MCG (411 MCG, 1 IN 1 D), IN
     Route: 055
  4. RAPAFLO (SILODOSIN) [Concomitant]
  5. ZYRTEC [Concomitant]
  6. LISINOPRIL [Concomitant]

REACTIONS (2)
  - ARRHYTHMIA [None]
  - HEART RATE INCREASED [None]
